FAERS Safety Report 8014899-3 (Version None)
Quarter: 2011Q4

REPORT INFORMATION
  Report Type: 
  Country: None (occurrence: None)
  Receive Date: 20111229
  Receipt Date: 20111220
  Transmission Date: 20120403
  Serious: Yes (Hospitalization)
  Sender: FDA-Public Use
  Company Number: FR-BAXTER-2011BH040275

PATIENT
  Age: 53 Year
  Sex: Female

DRUGS (2)
  1. CYCLOPHOSPHAMIDE [Suspect]
     Indication: IMMUNOSUPPRESSION
     Route: 065
     Dates: start: 20100801, end: 20101101
  2. IMURAN [Suspect]
     Indication: IMMUNOSUPPRESSION
     Route: 065
     Dates: start: 20101101

REACTIONS (1)
  - GASTRIC CANCER [None]
